FAERS Safety Report 11031931 (Version 3)
Quarter: 2015Q2

REPORT INFORMATION
  Report Type: Spontaneous
  Country: US (occurrence: US)
  Receive Date: 20150415
  Receipt Date: 20150512
  Transmission Date: 20150821
  Serious: Yes (Other)
  Sender: FDA-Public Use
  Company Number: US-PFIZER INC-2015122866

PATIENT
  Age: 58 Year
  Sex: Female
  Weight: 52 kg

DRUGS (6)
  1. EFFEXOR XR [Concomitant]
     Active Substance: VENLAFAXINE HYDROCHLORIDE
     Indication: BIPOLAR DISORDER
     Dosage: 37.5 MG, 1X/DAY
     Route: 048
     Dates: start: 2014
  2. LYRICA [Suspect]
     Active Substance: PREGABALIN
     Indication: LIMB DISCOMFORT
     Dosage: 75 MG, 2X/DAY
     Route: 048
     Dates: start: 2014, end: 201503
  3. LYRICA [Suspect]
     Active Substance: PREGABALIN
     Indication: ARTHROPATHY
  4. LYRICA [Suspect]
     Active Substance: PREGABALIN
     Indication: NERVE INJURY
  5. LYRICA [Suspect]
     Active Substance: PREGABALIN
     Indication: NEUROPATHY PERIPHERAL
  6. PERCOCET [Concomitant]
     Active Substance: ACETAMINOPHEN\OXYCODONE HYDROCHLORIDE
     Indication: PAIN
     Dosage: 5/325 MG, AS NEEDED 2X/DAY
     Route: 048

REACTIONS (7)
  - Hypokinesia [Not Recovered/Not Resolved]
  - Pain [Not Recovered/Not Resolved]
  - Condition aggravated [Not Recovered/Not Resolved]
  - Bone disorder [Unknown]
  - Tremor [Unknown]
  - Musculoskeletal stiffness [Unknown]
  - Insomnia [Unknown]

NARRATIVE: CASE EVENT DATE: 201503
